FAERS Safety Report 7478605-3 (Version None)
Quarter: 2011Q2

REPORT INFORMATION
  Report Type: 
  Country: None (occurrence: None)
  Receive Date: 20110506
  Receipt Date: 20110421
  Transmission Date: 20111010
  Serious: Yes (Death)
  Sender: FDA-Public Use
  Company Number: JPI-P-014797

PATIENT
  Age: 59 Year
  Sex: Male

DRUGS (3)
  1. XYREM [Suspect]
     Indication: SLEEP DISORDER
     Dosage: 4 GM (2 GM, 2 IN 1 D), ORAL, 10 GM (5 GM, 2 IN 1 D), ORAL
     Route: 048
     Dates: start: 20040101, end: 20040101
  2. XYREM [Suspect]
     Indication: SLEEP DISORDER
     Dosage: 4 GM (2 GM, 2 IN 1 D), ORAL, 10 GM (5 GM, 2 IN 1 D), ORAL
     Route: 048
     Dates: start: 20041011, end: 20050731
  3. XYREM [Suspect]
     Indication: SLEEP DISORDER
     Dosage: 4 GM (2 GM, 2 IN 1 D), ORAL, 10 GM (5 GM, 2 IN 1 D), ORAL
     Route: 048
     Dates: start: 20040413, end: 20040101

REACTIONS (1)
  - DEATH [None]
